FAERS Safety Report 8230893-1 (Version None)
Quarter: 2012Q1

REPORT INFORMATION
  Report Type: 
  Country: None (occurrence: None)
  Receive Date: 20120320
  Receipt Date: 20120305
  Transmission Date: 20120608
  Serious: Yes (Hospitalization)
  Sender: FDA-Public Use
  Company Number: ALK_01258_2010

PATIENT
  Sex: Female

DRUGS (1)
  1. VIVITROL [Suspect]
     Indication: ALCOHOLISM
     Dosage: (380 MG  1X/MONTH INTRAMUSCULAR)
     Route: 030
     Dates: start: 20100312

REACTIONS (1)
  - INJECTION SITE NECROSIS [None]
